FAERS Safety Report 17572906 (Version 9)
Quarter: 2020Q3

REPORT INFORMATION
  Report Type: Spontaneous
  Country: US (occurrence: US)
  Receive Date: 20200323
  Receipt Date: 20200905
  Transmission Date: 20201102
  Serious: Yes (Congenital Anomaly, Other)
  Sender: FDA-Public Use
  Company Number: NVSC2020US081606

PATIENT
  Sex: Female

DRUGS (2)
  1. ONDANSETRON [Suspect]
     Active Substance: ONDANSETRON
     Indication: FOETAL EXPOSURE DURING PREGNANCY
     Route: 064
  2. ZOFRAN [Suspect]
     Active Substance: ONDANSETRON HYDROCHLORIDE
     Indication: FOETAL EXPOSURE DURING PREGNANCY
     Route: 064

REACTIONS (78)
  - Micrognathia [Unknown]
  - Pharyngeal stenosis [Unknown]
  - Tonsillar hypertrophy [Unknown]
  - Epistaxis [Unknown]
  - Ear haemorrhage [Unknown]
  - Breathing-related sleep disorder [Unknown]
  - Teething [Unknown]
  - Ecchymosis [Unknown]
  - Swelling [Unknown]
  - Menstruation irregular [Unknown]
  - Tympanosclerosis [Unknown]
  - Hypoglycaemia [Unknown]
  - Cleft palate [Unknown]
  - Cleft lip [Unknown]
  - Pain [Unknown]
  - Poor feeding infant [Unknown]
  - Head injury [Unknown]
  - Sleep apnoea syndrome [Recovered/Resolved]
  - Nose deformity [Unknown]
  - Nasal valve collapse [Unknown]
  - Ligament rupture [Unknown]
  - Anxiety disorder [Unknown]
  - Congenital foot malformation [Unknown]
  - Congenital pharyngeal anomaly [Unknown]
  - Conductive deafness [Unknown]
  - Facial bones fracture [Unknown]
  - Otitis media [Unknown]
  - Ear canal abrasion [Unknown]
  - Eustachian tube dysfunction [Unknown]
  - Skin laceration [Unknown]
  - Nasal turbinate hypertrophy [Unknown]
  - Bone contusion [Unknown]
  - Foetal exposure during pregnancy [Unknown]
  - Pyrexia [Unknown]
  - Rhinorrhoea [Unknown]
  - Tympanic membrane scarring [Unknown]
  - Oedema mucosal [Unknown]
  - Dizziness [Recovered/Resolved]
  - Synovial cyst [Unknown]
  - Adenoidal hypertrophy [Unknown]
  - Otorrhoea [Unknown]
  - Anhedonia [Unknown]
  - Emotional distress [Unknown]
  - Speech disorder [Unknown]
  - Tympanic membrane perforation [Recovered/Resolved]
  - Depression [Unknown]
  - Cerumen impaction [Unknown]
  - Malocclusion [Unknown]
  - Congenital nasal septum deviation [Unknown]
  - Craniofacial deformity [Unknown]
  - Velopharyngeal incompetence [Recovered/Resolved]
  - Otitis externa [Unknown]
  - Eye infection [Unknown]
  - Dysphagia [Unknown]
  - Middle ear effusion [Unknown]
  - Jaundice [Unknown]
  - Upper-airway cough syndrome [Unknown]
  - Upper respiratory tract infection [Unknown]
  - Cyanosis [Unknown]
  - Skin abrasion [Unknown]
  - Scar [Unknown]
  - Sports injury [Unknown]
  - Concussion [Unknown]
  - Dysphonia [Unknown]
  - Injury [Not Recovered/Not Resolved]
  - Deformity [Unknown]
  - Irritability [Unknown]
  - Cough [Unknown]
  - Nasal congestion [Unknown]
  - Pharyngitis [Unknown]
  - Retching [Unknown]
  - Fall [Unknown]
  - Snoring [Unknown]
  - Ear infection [Unknown]
  - Rhinitis [Unknown]
  - Nasal obstruction [Unknown]
  - Bone marrow oedema [Unknown]
  - Ear pain [Unknown]
